FAERS Safety Report 9340405 (Version 2)
Quarter: 2013Q2

REPORT INFORMATION
  Report Type: Spontaneous
  Country: GB (occurrence: None)
  Receive Date: 20130605
  Receipt Date: 20130611
  Transmission Date: 20140414
  Serious: Yes (Hospitalization, Disabling)
  Sender: FDA-Public Use
  Company Number: AUR-APL-2013-04507

PATIENT
  Age: 55 Year
  Sex: Female

DRUGS (9)
  1. ALENDRONIC ACID (ALENDRONIC ACID) [Suspect]
     Indication: PROPHYLAXIS
     Dosage: 70 MG, 1 IN 1 WK
     Route: 048
     Dates: start: 200911, end: 20130516
  2. ALLOPURINOL [Concomitant]
  3. AMITRIPTYLINE [Concomitant]
  4. ASPIRIN [Concomitant]
  5. CANDESARTAN [Concomitant]
  6. CEFALEXIN [Concomitant]
  7. FUROSEMIDE [Concomitant]
  8. PREDNISOLONE [Concomitant]
  9. PROGRAF [Concomitant]

REACTIONS (2)
  - Pain in extremity [None]
  - Atypical femur fracture [None]
